FAERS Safety Report 10161820 (Version 1)
Quarter: 2014Q2

REPORT INFORMATION
  Report Type: Spontaneous
  Country: US (occurrence: US)
  Receive Date: 20140509
  Receipt Date: 20140509
  Transmission Date: 20141212
  Serious: Yes (Death, Hospitalization)
  Sender: FDA-Public Use
  Company Number: US-PAR PHARMACEUTICAL, INC-2014SCPR009038

PATIENT
  Sex: 0

DRUGS (1)
  1. MEGACE ES [Suspect]
     Indication: PRODUCT USED FOR UNKNOWN INDICATION
     Dosage: UNK, UNKNOWN
     Route: 048
     Dates: start: 2014, end: 2014

REACTIONS (3)
  - Pulmonary embolism [Fatal]
  - Aspiration [Fatal]
  - Death [Fatal]
